FAERS Safety Report 9437133 (Version 2)
Quarter: 2013Q4

REPORT INFORMATION
  Report Type: Spontaneous
  Country: US (occurrence: US)
  Receive Date: 20130802
  Receipt Date: 20131007
  Transmission Date: 20140711
  Serious: No
  Sender: FDA-Public Use
  Company Number: US-JNJFOC-20130716190

PATIENT
  Age: 68 Year
  Sex: Female

DRUGS (23)
  1. PRADAXA [Concomitant]
     Indication: CEREBROVASCULAR ACCIDENT
     Route: 065
     Dates: start: 201203
  2. DETROL LA [Concomitant]
     Route: 065
  3. DICYCLOMINE [Concomitant]
     Route: 065
  4. FLOVENT HFA [Concomitant]
     Route: 065
  5. FUROSEMIDE [Concomitant]
     Route: 065
  6. SYNTHROID [Concomitant]
     Route: 065
  7. METFORMIN HCL [Concomitant]
     Route: 065
  8. NEXIUM [Concomitant]
     Route: 065
  9. POTASSIUM [Concomitant]
     Route: 065
  10. VITAMIN B12 [Concomitant]
     Route: 065
  11. ULTRAM [Suspect]
     Indication: MIGRAINE
     Dosage: EVERY 6 HOURS, IN 2000S
     Route: 048
     Dates: end: 201304
  12. ULTRAM [Suspect]
     Indication: FIBROMYALGIA
     Dosage: EVERY 6 HOURS, IN 2000S
     Route: 048
     Dates: end: 201304
  13. ULTRAM [Suspect]
     Indication: ARTHRITIS
     Dosage: EVERY 6 HOURS, IN 2000S
     Route: 048
     Dates: end: 201304
  14. TRAMADOL HYDROCHLORIDE [Suspect]
     Indication: PAIN
     Dosage: EVERY 6 HOURS
     Route: 048
     Dates: start: 20130131
  15. TRAMADOL HYDROCHLORIDE [Suspect]
     Indication: PAIN
     Dosage: EVERY 6 HOURS, INITIATED AROUND 1996
     Route: 048
  16. TRAMADOL HYDROCHLORIDE [Suspect]
     Indication: MIGRAINE
     Dosage: EVERY 6 HOURS
     Route: 048
     Dates: start: 20130131
  17. TRAMADOL HYDROCHLORIDE [Suspect]
     Indication: MIGRAINE
     Dosage: EVERY 6 HOURS, INITIATED AROUND 1996
     Route: 048
  18. TRAMADOL HYDROCHLORIDE [Suspect]
     Indication: FIBROMYALGIA
     Dosage: EVERY 6 HOURS
     Route: 048
     Dates: start: 20130131
  19. TRAMADOL HYDROCHLORIDE [Suspect]
     Indication: FIBROMYALGIA
     Dosage: EVERY 6 HOURS, INITIATED AROUND 1996
     Route: 048
  20. TRAMADOL HYDROCHLORIDE [Suspect]
     Indication: ARTHRITIS
     Dosage: EVERY 6 HOURS, INITIATED AROUND 1996
     Route: 048
  21. TRAMADOL HYDROCHLORIDE [Suspect]
     Indication: ARTHRITIS
     Dosage: EVERY 6 HOURS
     Route: 048
     Dates: start: 20130131
  22. ATENOLOL [Concomitant]
     Indication: ATRIAL FIBRILLATION
     Route: 065
     Dates: start: 1995
  23. BENTYL [Concomitant]
     Indication: IRRITABLE BOWEL SYNDROME
     Route: 065
     Dates: start: 1995

REACTIONS (1)
  - Drug ineffective [Not Recovered/Not Resolved]
